FAERS Safety Report 21791874 (Version 1)
Quarter: 2022Q4

REPORT INFORMATION
  Report Type: Spontaneous
  Country: NP (occurrence: NP)
  Receive Date: 20221229
  Receipt Date: 20221229
  Transmission Date: 20230113
  Serious: Yes (Other)
  Sender: FDA-Public Use
  Company Number: NP-SUN PHARMACEUTICAL INDUSTRIES LTD-2022RR-370058

PATIENT
  Age: 63 Year
  Sex: Male

DRUGS (1)
  1. NOREPINEPHRINE [Suspect]
     Active Substance: NOREPINEPHRINE
     Indication: Septic shock
     Dosage: 10 MICROGRAM/MIN
     Route: 042

REACTIONS (3)
  - Injection site ischaemia [Unknown]
  - Blister [Unknown]
  - Extravasation [Unknown]
